FAERS Safety Report 4665649-X (Version None)
Quarter: 2005Q2

REPORT INFORMATION
  Report Type: 
  Country: None (occurrence: None)
  Receive Date: 20050517
  Receipt Date: 20050428
  Transmission Date: 20051028
  Serious: Yes (Other)
  Sender: FDA-Public Use
  Company Number: USA050597120

PATIENT
  Age: 8 Year
  Weight: 30 kg

DRUGS (1)
  1. STRATTERA [Suspect]
     Dosage: 50 MG DAY
     Dates: start: 20040427, end: 20040427

REACTIONS (1)
  - CONVULSION [None]
